FAERS Safety Report 20794851 (Version 1)
Quarter: 2022Q2

REPORT INFORMATION
  Report Type: Spontaneous
  Country: US (occurrence: US)
  Receive Date: 20220506
  Receipt Date: 20220506
  Transmission Date: 20220721
  Serious: No
  Sender: FDA-Public Use
  Company Number: US-UCBSA-2021042452

PATIENT
  Sex: Female

DRUGS (3)
  1. CIMZIA [Suspect]
     Active Substance: CERTOLIZUMAB PEGOL
     Indication: Rheumatoid arthritis
     Dosage: 200 MILLIGRAM, EV 2 WEEKS(QOW)
     Route: 058
     Dates: start: 202102
  2. VITAMINS [Concomitant]
     Active Substance: VITAMINS
  3. COVID-19 VACCINE [Concomitant]

REACTIONS (2)
  - Rheumatoid arthritis [Unknown]
  - COVID-19 immunisation [Unknown]
